FAERS Safety Report 9324513 (Version 1)
Quarter: 2013Q2

REPORT INFORMATION
  Report Type: Spontaneous
  Country: US (occurrence: None)
  Receive Date: 20130531
  Receipt Date: 20130531
  Transmission Date: 20140414
  Serious: No
  Sender: FDA-Public Use
  Company Number: None

PATIENT
  Age: 73 Year
  Sex: Female
  Weight: 31.75 kg

DRUGS (10)
  1. CITALOPRAM HBR [Suspect]
     Indication: DEPRESSION
     Route: 048
  2. CELEXA [Concomitant]
  3. LAMICTAL [Concomitant]
  4. LISINOPRIL [Concomitant]
  5. AMLODIPINE [Concomitant]
  6. LEVOXYL [Concomitant]
  7. LEVASTATIN [Concomitant]
  8. THERAGRAMM [Concomitant]
  9. VITD3 [Concomitant]
  10. OMEGA 3 [Concomitant]

REACTIONS (1)
  - Procedural haemorrhage [None]
